FAERS Safety Report 12489402 (Version 1)
Quarter: 2016Q2

REPORT INFORMATION
  Report Type: Spontaneous
  Country: US (occurrence: US)
  Receive Date: 20160622
  Receipt Date: 20160622
  Transmission Date: 20160815
  Serious: Yes (Other)
  Sender: FDA-Public Use
  Company Number: US-BAYER-2016-115050

PATIENT
  Age: 17 Year
  Sex: Female
  Weight: 54.42 kg

DRUGS (1)
  1. RID SHAMPOO [Suspect]
     Active Substance: PIPERONYL BUTOXIDE\PYRETHRIN I
     Dosage: 1 DF, ONCE
     Route: 061
     Dates: start: 20160608, end: 20160608

REACTIONS (2)
  - Headache [None]
  - Exophthalmos [None]

NARRATIVE: CASE EVENT DATE: 20160610
